FAERS Safety Report 25503579 (Version 1)
Quarter: 2025Q2

REPORT INFORMATION
  Report Type: Spontaneous
  Country: US (occurrence: None)
  Receive Date: 20250630
  Receipt Date: 20250630
  Transmission Date: 20250717
  Serious: Yes (Death)
  Sender: FDA-CTU
  Company Number: None

PATIENT
  Age: 75 Year
  Sex: Male
  Weight: 78.75 kg

DRUGS (1)
  1. AMIODARONE [Suspect]
     Active Substance: AMIODARONE
     Indication: Atrial fibrillation
     Dates: start: 20211102, end: 20211201

REACTIONS (3)
  - Pulmonary toxicity [None]
  - Chest X-ray abnormal [None]
  - Lung disorder [None]

NARRATIVE: CASE EVENT DATE: 20211102
